FAERS Safety Report 4362464-1 (Version None)
Quarter: 2004Q2

REPORT INFORMATION
  Report Type: 
  Country: None (occurrence: None)
  Receive Date: 20040521
  Receipt Date: 20040511
  Transmission Date: 20050107
  Serious: Yes (Hospitalization)
  Sender: FDA-Public Use
  Company Number: 2004JP000929

PATIENT
  Age: 8 Year
  Sex: Female
  Weight: 29 kg

DRUGS (1)
  1. SAWACILLIN [Suspect]
     Dosage: 750MG PER DAY
     Route: 048

REACTIONS (3)
  - INFLAMMATION [None]
  - PIGMENTATION DISORDER [None]
  - STEVENS-JOHNSON SYNDROME [None]
